FAERS Safety Report 21138816 (Version 4)
Quarter: 2022Q4

REPORT INFORMATION
  Report Type: Spontaneous
  Country: JP (occurrence: JP)
  Receive Date: 20220727
  Receipt Date: 20221212
  Transmission Date: 20230113
  Serious: Yes (Death, Other)
  Sender: FDA-Public Use
  Company Number: JP-MSD-2207JPN002694J

PATIENT
  Age: 69 Year
  Sex: Female
  Weight: 39 kg

DRUGS (21)
  1. LAGEVRIO [Suspect]
     Active Substance: MOLNUPIRAVIR
     Indication: COVID-19 treatment
     Dosage: 800 MILLIGRAM, BID
     Route: 048
     Dates: start: 20220715, end: 20220715
  2. BELSOMRA [Concomitant]
     Active Substance: SUVOREXANT
     Indication: Insomnia
     Dosage: 20 MILLIGRAM, QD, BEFORE SLEEP
     Route: 048
     Dates: start: 20170530, end: 20220714
  3. OLANZAPINE [Concomitant]
     Active Substance: OLANZAPINE
     Indication: Schizophrenia
     Dosage: 20 MILLIGRAM, QD, BEFORE SLEEP
     Route: 048
     Dates: start: 20170306, end: 20220714
  4. OLANZAPINE [Concomitant]
     Active Substance: OLANZAPINE
     Indication: Hallucination, auditory
  5. OLANZAPINE [Concomitant]
     Active Substance: OLANZAPINE
     Indication: Delusion
  6. VALPROATE SODIUM [Concomitant]
     Active Substance: VALPROATE SODIUM
     Indication: Epilepsy
     Dosage: 500 MILLIGRAM, BID, AFTER BREAKFAST AND AFTER LUNCH
     Route: 048
     Dates: start: 20170306, end: 20220715
  7. VALPROATE SODIUM [Concomitant]
     Active Substance: VALPROATE SODIUM
     Indication: Affective disorder
  8. PANTETHINE [Concomitant]
     Active Substance: PANTETHINE
     Indication: Constipation
     Dosage: 100 MILLIGRAM, TID, AFTER BREAKFAST AND AFTER LUNCH
     Route: 048
     Dates: start: 20181215, end: 20220715
  9. BIPERIDEN HYDROCHLORIDE [Concomitant]
     Active Substance: BIPERIDEN HYDROCHLORIDE
     Indication: Parkinsonism
     Dosage: 1 MILLIGRAM, TID, BEFORE SLEEP
     Route: 048
     Dates: start: 20190119, end: 20220715
  10. HIBERNA [Concomitant]
     Active Substance: PROMETHAZINE HYDROCHLORIDE
     Indication: Hallucination, auditory
     Dosage: 50 MILLIGRAM, QD, BEFORE SLEEP
     Route: 048
     Dates: start: 20170306, end: 20220714
  11. FLUNITRAZEPAM [Concomitant]
     Active Substance: FLUNITRAZEPAM
     Indication: Respiratory depression
     Dosage: 2 MILLIGRAM, QD, BEFORE SLEEP
     Route: 048
     Dates: start: 20170306, end: 20220714
  12. FLUNITRAZEPAM [Concomitant]
     Active Substance: FLUNITRAZEPAM
     Indication: Insomnia
  13. BROTIZOLAM [Concomitant]
     Active Substance: BROTIZOLAM
     Indication: Respiratory depression
     Dosage: 0.25 MILLIGRAM, QD, BEFORE SLEEP
     Route: 048
     Dates: start: 20170306, end: 20220714
  14. BROTIZOLAM [Concomitant]
     Active Substance: BROTIZOLAM
     Indication: Insomnia
  15. BLONANSERIN [Concomitant]
     Active Substance: BLONANSERIN
     Indication: Hallucination, auditory
     Dosage: 32 MILLIGRAM, BID, AFTER BREAKFAST AND AFTER LUNCH
     Route: 048
     Dates: start: 20190824, end: 20220715
  16. BLONANSERIN [Concomitant]
     Active Substance: BLONANSERIN
     Indication: Delusion
  17. MAGNESIUM OXIDE [Concomitant]
     Active Substance: MAGNESIUM OXIDE
     Indication: Constipation
     Dosage: 330 MILLIGRAM, TID
     Route: 048
     Dates: start: 20170306, end: 20220715
  18. LITHIUM CARBONATE [Concomitant]
     Active Substance: LITHIUM CARBONATE
     Indication: Mania
     Dosage: 200 MILLIGRAM, BID
     Route: 048
     Dates: start: 20170306, end: 20220715
  19. LACTOSE [Concomitant]
     Active Substance: LACTOSE
     Dosage: 1 GRAM, QD, BEFORE SLEEP
     Route: 048
  20. LACTOSE [Concomitant]
     Active Substance: LACTOSE
     Dosage: 1 GRAM, PRN
     Route: 048
     Dates: end: 20220714
  21. CALONAL [Concomitant]
     Active Substance: ACETAMINOPHEN
     Indication: Pyrexia
     Dosage: 1 GRAM, QD
     Route: 048
     Dates: start: 20220715, end: 20220715

REACTIONS (2)
  - Acute respiratory failure [Fatal]
  - COVID-19 [Unknown]

NARRATIVE: CASE EVENT DATE: 20220715
